FAERS Safety Report 10403337 (Version 1)
Quarter: 2014Q3

REPORT INFORMATION
  Report Type: Spontaneous
  Country: US (occurrence: US)
  Receive Date: 20140822
  Receipt Date: 20140822
  Transmission Date: 20150326
  Serious: Yes (Death)
  Sender: FDA-Public Use
  Company Number: US-BAYER-2014-124856

PATIENT
  Sex: Female

DRUGS (1)
  1. SAFYRAL [Suspect]
     Active Substance: DROSPIRENONE\ETHINYL ESTRADIOL\LEVOMEFOLATE CALCIUM
     Dosage: UNK
     Dates: start: 201112, end: 201208

REACTIONS (6)
  - Deep vein thrombosis [Fatal]
  - Injury [Fatal]
  - Pain [Fatal]
  - Pulmonary embolism [Fatal]
  - Emotional distress [None]
  - Anhedonia [None]

NARRATIVE: CASE EVENT DATE: 201208
